FAERS Safety Report 5487623-6 (Version None)
Quarter: 2007Q4

REPORT INFORMATION
  Report Type: 
  Country: None (occurrence: None)
  Receive Date: 20071017
  Receipt Date: 20071005
  Transmission Date: 20080405
  Serious: Yes (Hospitalization)
  Sender: FDA-Public Use
  Company Number: JP-NOVOPROD-268011

PATIENT
  Age: 8 Year
  Sex: Female
  Weight: 18 kg

DRUGS (1)
  1. NORDITROPIN NORDIFLEX [Suspect]
     Indication: BODY HEIGHT BELOW NORMAL
     Dosage: 5.3 - 6 MG
     Route: 058
     Dates: start: 20050303, end: 20070913

REACTIONS (1)
  - APLASTIC ANAEMIA [None]
